FAERS Safety Report 10815310 (Version 3)
Quarter: 2015Q2

REPORT INFORMATION
  Report Type: Spontaneous
  Country: US (occurrence: US)
  Receive Date: 20150218
  Receipt Date: 20150409
  Transmission Date: 20150821
  Serious: Yes (Other)
  Sender: FDA-Public Use
  Company Number: US-RB-072482-15

PATIENT
  Age: 67 Year
  Sex: Male
  Weight: 68.04 kg

DRUGS (3)
  1. MUCINEX DM [Suspect]
     Active Substance: DEXTROMETHORPHAN HYDROBROMIDE\GUAIFENESIN
     Indication: NASOPHARYNGITIS
     Dosage: TOOK THE DRUG IN THE WEEK BEFORE REPORTING. TOOK 1 TABLET (TOTAL)
     Route: 065
  2. MULTI-VITAMIN [Concomitant]
     Active Substance: .ALPHA.-TOCOPHEROL ACETATE, DL-\ASCORBIC ACID\CYANOCOBALAMIN\FLUORIDE ION\FOLIC ACID\NIACIN\PYRIDOXINE\RIBOFLAVIN\THIAMINE\VITAMIN A\VITAMIN D
     Indication: PRODUCT USED FOR UNKNOWN INDICATION
     Dosage: TOOK EVERY DAY.
     Route: 065
  3. ASPIRIN. [Concomitant]
     Active Substance: ASPIRIN
     Indication: PRODUCT USED FOR UNKNOWN INDICATION
     Dosage: TOOK EVERYDAY
     Route: 065

REACTIONS (9)
  - Urinary retention [Recovered/Resolved]
  - Dysuria [Recovered/Resolved]
  - Muscle tightness [Recovered/Resolved]
  - Craniocerebral injury [None]
  - Discomfort [Unknown]
  - Laceration [None]
  - Abdominal pain lower [Unknown]
  - Fall [None]
  - Dizziness [None]

NARRATIVE: CASE EVENT DATE: 201501
